FAERS Safety Report 6077959-2 (Version None)
Quarter: 2009Q1

REPORT INFORMATION
  Report Type: 
  Country: None (occurrence: None)
  Receive Date: 20090213
  Receipt Date: 20090210
  Transmission Date: 20090719
  Serious: No
  Sender: FDA-Public Use
  Company Number: CH-EISAI MEDICAL RESEARCH-E2090-00660-SPO-CH

PATIENT
  Age: 6 Year
  Sex: Female
  Weight: 16 kg

DRUGS (3)
  1. ZONEGRAN [Suspect]
     Indication: EPILEPSY
     Route: 048
     Dates: start: 20070901
  2. VALPROIC ACID [Concomitant]
     Indication: EPILEPSY
     Dates: start: 20060101
  3. BROMIDE (CLB) [Concomitant]
     Indication: EPILEPSY

REACTIONS (3)
  - CONVULSION [None]
  - HYPOTONIA [None]
  - HYPOVENTILATION [None]
